FAERS Safety Report 9691300 (Version 1)
Quarter: 2013Q4

REPORT INFORMATION
  Report Type: Report from Study
  Country: US (occurrence: US)
  Receive Date: 20131115
  Receipt Date: 20131115
  Transmission Date: 20140711
  Serious: Yes (Other)
  Sender: FDA-Public Use
  Company Number: US-MYLANLABS-2013S1025387

PATIENT
  Age: 27 Year
  Sex: Male

DRUGS (1)
  1. MYCOPHENOLATE [Suspect]

REACTIONS (1)
  - Exposure via father [Not Recovered/Not Resolved]
